FAERS Safety Report 24771805 (Version 1)
Quarter: 2024Q4

REPORT INFORMATION
  Report Type: Spontaneous
  Country: US (occurrence: US)
  Receive Date: 20241224
  Receipt Date: 20241224
  Transmission Date: 20250114
  Serious: No
  Sender: ALEXION PHARMACEUTICALS
  Company Number: US-AstraZeneca-CH-00768377A

PATIENT
  Age: 35 Year

DRUGS (8)
  1. ULTOMIRIS [Suspect]
     Active Substance: RAVULIZUMAB-CWVZ
     Indication: Neuromyelitis optica spectrum disorder
     Dosage: UNK, Q8W
  2. ULTOMIRIS [Suspect]
     Active Substance: RAVULIZUMAB-CWVZ
     Dosage: UNK, Q8W
     Route: 042
  3. ULTOMIRIS [Suspect]
     Active Substance: RAVULIZUMAB-CWVZ
     Dosage: UNK, Q8W
  4. ULTOMIRIS [Suspect]
     Active Substance: RAVULIZUMAB-CWVZ
     Dosage: UNK, Q8W
     Route: 042
  5. PENICILLIN [Suspect]
     Active Substance: PENICILLIN
     Indication: Antibiotic prophylaxis
     Dosage: 500 MILLIGRAM, BID
  6. PENICILLIN [Suspect]
     Active Substance: PENICILLIN
     Dosage: 500 MILLIGRAM, BID
     Route: 048
  7. PENICILLIN [Suspect]
     Active Substance: PENICILLIN
     Dosage: 500 MILLIGRAM, BID
  8. PENICILLIN [Suspect]
     Active Substance: PENICILLIN
     Dosage: 500 MILLIGRAM, BID
     Route: 048

REACTIONS (1)
  - Oesophagitis [Recovering/Resolving]
